FAERS Safety Report 14527759 (Version 2)
Quarter: 2018Q1

REPORT INFORMATION
  Report Type: Spontaneous
  Country: US (occurrence: US)
  Receive Date: 20180213
  Receipt Date: 20180228
  Transmission Date: 20180509
  Serious: Yes (Other)
  Sender: FDA-Public Use
  Company Number: US-LUNDBECK-DKLU2043873

PATIENT
  Age: 64 Year
  Sex: Male

DRUGS (5)
  1. NORTHERA [Suspect]
     Active Substance: DROXIDOPA
     Dosage: SCHEDULE B, TITRATING
     Route: 048
     Dates: start: 20180125
  2. NORTHERA [Suspect]
     Active Substance: DROXIDOPA
     Indication: UNRESPONSIVE TO STIMULI
     Dosage: SCHEDULE B
     Route: 048
     Dates: start: 20180204
  3. NORTHERA [Suspect]
     Active Substance: DROXIDOPA
     Indication: STARING
     Dosage: SCHEDULE B
     Route: 048
     Dates: start: 20180124
  4. NORTHERA [Suspect]
     Active Substance: DROXIDOPA
     Indication: MOVEMENT DISORDER
     Dosage: SCHEDULE B
     Route: 048
     Dates: start: 20180205
  5. NORTHERA [Suspect]
     Active Substance: DROXIDOPA
     Dosage: SCHEDULE C; TITRATING
     Route: 048
     Dates: start: 20180206

REACTIONS (8)
  - Dizziness [Unknown]
  - Movement disorder [Unknown]
  - Drug effect decreased [Unknown]
  - Blood pressure orthostatic decreased [Unknown]
  - Condition aggravated [Unknown]
  - Staring [Unknown]
  - Unresponsive to stimuli [Unknown]
  - Drug ineffective [Unknown]

NARRATIVE: CASE EVENT DATE: 20180127
